FAERS Safety Report 6960229-5 (Version None)
Quarter: 2010Q3

REPORT INFORMATION
  Report Type: 
  Country: None (occurrence: None)
  Receive Date: 20100901
  Receipt Date: 20100823
  Transmission Date: 20110219
  Serious: Yes (Other)
  Sender: FDA-Public Use
  Company Number: US-SANOFI-AVENTIS-2010SA047313

PATIENT
  Sex: Female
  Weight: 91 kg

DRUGS (11)
  1. LANTUS [Suspect]
     Dosage: 100 UNITS AND 130 UNITS
     Route: 058
  2. APIDRA [Suspect]
     Indication: TYPE 2 DIABETES MELLITUS
     Dosage: SLIDING SCALE WITH MEALS
  3. OPTICLICK [Suspect]
  4. GLIMEPIRIDE [Concomitant]
     Route: 065
  5. PRANDIN [Concomitant]
     Route: 065
  6. CRESTOR [Concomitant]
     Route: 065
  7. AMLODIPINE [Concomitant]
     Route: 065
  8. GLIPIZIDE [Concomitant]
     Route: 065
  9. METOPROLOL TARTRATE [Concomitant]
     Route: 065
  10. MICARDIS [Concomitant]
     Route: 065
  11. GABAPENTIN [Concomitant]
     Route: 065

REACTIONS (3)
  - CATARACT [None]
  - CONDITION AGGRAVATED [None]
  - VISUAL IMPAIRMENT [None]
